FAERS Safety Report 9625688 (Version 1)
Quarter: 2013Q4

REPORT INFORMATION
  Report Type: Spontaneous
  Country: FI (occurrence: FI)
  Receive Date: 20131016
  Receipt Date: 20131016
  Transmission Date: 20140711
  Serious: No
  Sender: FDA-Public Use
  Company Number: FI-JNJFOC-20131006517

PATIENT
  Age: 37 Year
  Sex: Male

DRUGS (1)
  1. STELARA [Suspect]
     Indication: PSORIASIS
     Route: 058
     Dates: start: 20130505

REACTIONS (1)
  - Alanine aminotransferase increased [Not Recovered/Not Resolved]
